FAERS Safety Report 8623265-9 (Version None)
Quarter: 2012Q3

REPORT INFORMATION
  Report Type: 
  Country: None (occurrence: None)
  Receive Date: 20120827
  Receipt Date: 20120816
  Transmission Date: 20120928
  Serious: Yes (Hospitalization, Other)
  Sender: FDA-Public Use
  Company Number: CN-ASTRAZENECA-2011SE18547

PATIENT
  Age: 277 Month
  Sex: Female
  Weight: 60 kg

DRUGS (3)
  1. SEROQUEL [Suspect]
     Route: 048
     Dates: start: 20110201
  2. MAGNESIUM VALPROATE [Concomitant]
     Indication: BIPOLAR DISORDER
     Route: 048
     Dates: start: 20080101
  3. SEROQUEL [Suspect]
     Indication: BIPOLAR DISORDER
     Route: 048
     Dates: start: 20080101

REACTIONS (3)
  - OVERDOSE [None]
  - BIPOLAR DISORDER [None]
  - INSOMNIA [None]
